FAERS Safety Report 10037431 (Version 3)
Quarter: 2014Q2

REPORT INFORMATION
  Report Type: Spontaneous
  Country: BR (occurrence: BR)
  Receive Date: 20140326
  Receipt Date: 20140505
  Transmission Date: 20141212
  Serious: Yes (Hospitalization, Other)
  Sender: FDA-Public Use
  Company Number: BR-UCBSA-115463

PATIENT
  Age: 40 Year
  Sex: Female
  Weight: 65 kg

DRUGS (4)
  1. CIMZIA [Suspect]
     Indication: RHEUMATOID ARTHRITIS
     Dosage: 200MG/ML,
     Route: 058
     Dates: start: 201401, end: 20140309
  2. TYLENOL [Concomitant]
     Indication: BACK PAIN
     Dates: start: 201403
  3. DORFLEX [Concomitant]
     Indication: BACK PAIN
     Dates: start: 201403
  4. ARAVA [Concomitant]
     Dosage: 20MG
     Route: 048
     Dates: start: 2010

REACTIONS (8)
  - Tuberculosis [Not Recovered/Not Resolved]
  - Pneumonia [Recovered/Resolved]
  - Pleural effusion [Recovering/Resolving]
  - Diabetes mellitus [Not Recovered/Not Resolved]
  - Arthritis [Not Recovered/Not Resolved]
  - Decreased appetite [Not Recovered/Not Resolved]
  - Weight decreased [Not Recovered/Not Resolved]
  - Retching [Unknown]
